FAERS Safety Report 24164146 (Version 1)
Quarter: 2024Q3

REPORT INFORMATION
  Report Type: Report from Study
  Country: US (occurrence: US)
  Receive Date: 20240801
  Receipt Date: 20240801
  Transmission Date: 20241017
  Serious: Yes (Hospitalization, Other)
  Sender: BAXTER
  Company Number: US-BAXTER-2024BAX021917

PATIENT
  Age: 74 Year
  Sex: Female
  Weight: 62.6 kg

DRUGS (21)
  1. DOXORUBICIN [Suspect]
     Active Substance: DOXORUBICIN
     Indication: Peripheral T-cell lymphoma unspecified
     Dosage: 50 MG/M2, ON DAY 1 OF EACH CYCLE, DOSAGE FORM: POWDER FOR SOLUTION FOR INJECTION
     Route: 042
     Dates: start: 20210709, end: 20210709
  2. DOXORUBICIN [Suspect]
     Active Substance: DOXORUBICIN
     Dosage: UNK, REDUCES 20 PERCENT, C2D1
     Route: 042
  3. CYCLOPHOSPHAMIDE [Suspect]
     Active Substance: CYCLOPHOSPHAMIDE
     Indication: Peripheral T-cell lymphoma unspecified
     Dosage: 750 MG/M2, ON DAYS 1 OF EVERY 21-DAY CYCLE, DOAGE FORM-SOLUTION FOR INFUSION
     Route: 042
     Dates: start: 20210709, end: 20210709
  4. CYCLOPHOSPHAMIDE [Suspect]
     Active Substance: CYCLOPHOSPHAMIDE
     Dosage: UNK, REDUCES 20 PERCENT, C2D1
     Route: 042
  5. PREDNISONE [Suspect]
     Active Substance: PREDNISONE
     Indication: Peripheral T-cell lymphoma unspecified
     Dosage: 100 MG, DAILY ADMINISTERED ORALLY ON DAYS 1-5 (?1 DAY WINDOW) OF EACH CYCLE
     Route: 048
     Dates: start: 20210709, end: 20210709
  6. PREDNISONE [Suspect]
     Active Substance: PREDNISONE
     Dosage: UNK, REDUCES 20 PERCENT, C2D1
     Route: 042
  7. BRENTUXIMAB VEDOTIN [Suspect]
     Active Substance: BRENTUXIMAB VEDOTIN
     Indication: Peripheral T-cell lymphoma unspecified
     Dosage: 1.8 MG/KG, INFUSION ON DAYS 1 OF EVERY 21-DAY CYCLE,
     Route: 042
     Dates: start: 20210709, end: 20210709
  8. BRENTUXIMAB VEDOTIN [Suspect]
     Active Substance: BRENTUXIMAB VEDOTIN
     Dosage: 1.2 MG/KG D1 Q CYCLE, C2
     Route: 042
  9. TYLENOL [Concomitant]
     Active Substance: ACETAMINOPHEN
     Dosage: UNK
     Route: 065
     Dates: start: 20080101
  10. VASOTEC [Concomitant]
     Active Substance: ENALAPRIL MALEATE
     Dosage: UNK
     Route: 048
     Dates: start: 20080101
  11. ATIVAN [Concomitant]
     Active Substance: LORAZEPAM
     Dosage: UNK
     Route: 048
     Dates: start: 20100101
  12. ZOFRAN [Concomitant]
     Active Substance: ONDANSETRON HYDROCHLORIDE
     Indication: Nausea
     Dosage: UNK
     Route: 065
     Dates: start: 20210709
  13. ZOFRAN [Concomitant]
     Active Substance: ONDANSETRON HYDROCHLORIDE
     Indication: Vomiting
  14. PRAVACHOL [Concomitant]
     Active Substance: PRAVASTATIN SODIUM
     Dosage: UNK
     Route: 065
     Dates: start: 20210101
  15. SODIUM CHLORIDE [Concomitant]
     Active Substance: SODIUM CHLORIDE
     Dosage: UNK
     Route: 045
     Dates: start: 20190101
  16. ALOE VERA LEAF [Concomitant]
     Active Substance: ALOE VERA LEAF
     Dosage: UNK
     Route: 045
     Dates: start: 20190101
  17. BACTRIM DS [Concomitant]
     Active Substance: SULFAMETHOXAZOLE\TRIMETHOPRIM
     Dosage: UNK
     Route: 048
     Dates: start: 20210709, end: 20210730
  18. VALTREX [Concomitant]
     Active Substance: VALACYCLOVIR HYDROCHLORIDE
     Dosage: UNK
     Route: 048
     Dates: start: 20210709
  19. ZYLOPRIM [Concomitant]
     Active Substance: ALLOPURINOL
     Dosage: UNK
     Route: 048
     Dates: start: 20210629, end: 20210729
  20. LORATADINE [Concomitant]
     Active Substance: LORATADINE
     Route: 048
  21. DELTASONE [Concomitant]
     Active Substance: PREDNISONE
     Dosage: UNK
     Route: 048
     Dates: start: 20210709

REACTIONS (2)
  - Diarrhoea [Recovered/Resolved]
  - Febrile neutropenia [Recovered/Resolved]

NARRATIVE: CASE EVENT DATE: 20210712
